FAERS Safety Report 12492500 (Version 1)
Quarter: 2016Q2

REPORT INFORMATION
  Report Type: Spontaneous
  Country: CA (occurrence: CA)
  Receive Date: 20160623
  Receipt Date: 20160623
  Transmission Date: 20160815
  Serious: Yes (Hospitalization, Other)
  Sender: FDA-Public Use
  Company Number: PHHY2016CA082949

PATIENT
  Sex: Male
  Weight: 2.22 kg

DRUGS (6)
  1. IMMUNOGLOBULIN I.V [Suspect]
     Active Substance: HUMAN IMMUNOGLOBULIN G
     Indication: FOETAL EXPOSURE DURING PREGNANCY
     Dosage: METRERNAL DOSE 50 G,  WEEKLY
     Route: 064
  2. ANTI-D IMMUNOGLOBULIN [Suspect]
     Active Substance: HUMAN RHO(D) IMMUNE GLOBULIN
     Indication: FOETAL EXPOSURE DURING PREGNANCY
     Dosage: METRERNAL DOSE 50 G/KG, WEEKLY
     Route: 064
  3. MENINGOCOCCAL POLYSACCHARIDE VACCINE A NOS [Suspect]
     Active Substance: MENINGOCOCCAL POLYSACCHARIDE VACCINE A\NEISSERIA MENINGITIDIS GROUP A CAPSULAR POLYSACCHARIDE ANTIGEN
     Indication: FOETAL EXPOSURE DURING PREGNANCY
     Route: 064
  4. HAEMOPHILUS INFLUENZAE B [Suspect]
     Active Substance: HAEMOPHILUS INFLUENZAE TYPE B
     Indication: FOETAL EXPOSURE DURING PREGNANCY
     Route: 064
  5. PREDNISONE. [Suspect]
     Active Substance: PREDNISONE
     Indication: FOETAL EXPOSURE DURING PREGNANCY
     Dosage: METERNAL DOSE 50 MG, QD
     Route: 064
  6. OXYTOCIN. [Suspect]
     Active Substance: OXYTOCIN
     Indication: FOETAL EXPOSURE DURING PREGNANCY
     Route: 064

REACTIONS (7)
  - Low birth weight baby [Unknown]
  - Maternal drugs affecting foetus [None]
  - Jaundice neonatal [Unknown]
  - Premature baby [Unknown]
  - Foetal exposure during pregnancy [Unknown]
  - Caesarean section [None]
  - Bradycardia foetal [Unknown]
